FAERS Safety Report 9669810 (Version 13)
Quarter: 2014Q3

REPORT INFORMATION
  Report Type: Spontaneous
  Country: US (occurrence: US)
  Receive Date: 20131105
  Receipt Date: 20140922
  Transmission Date: 20150326
  Serious: Yes (Death, Life-Threatening, Hospitalization, Other)
  Sender: FDA-Public Use
  Company Number: US-GLAXOSMITHKLINE-A1048125A

PATIENT
  Age: 64 Year
  Sex: Male
  Weight: 77.3 kg

DRUGS (21)
  1. RITUXAN [Suspect]
     Active Substance: RITUXIMAB
     Indication: CHRONIC LYMPHOCYTIC LEUKAEMIA
     Dosage: 2000MG WEEKLY
     Route: 042
     Dates: start: 20131003, end: 20131108
  2. ACYCLOVIR. [Concomitant]
     Active Substance: ACYCLOVIR
     Indication: PROPHYLAXIS
     Dosage: 400MG TWICE PER DAY
     Route: 048
     Dates: start: 20120926
  3. PREDNISONE. [Concomitant]
     Active Substance: PREDNISONE
     Indication: ERYTHEMA
     Dosage: 20MG SEE DOSAGE TEXT
     Route: 048
     Dates: start: 20100505
  4. CHLORAMBUCIL [Suspect]
     Active Substance: CHLORAMBUCIL
     Indication: CHRONIC LYMPHOCYTIC LEUKAEMIA
     Dosage: 6MG CYCLIC
     Route: 048
     Dates: start: 20131127, end: 20140124
  5. ACETAMINOPHEN. [Concomitant]
     Active Substance: ACETAMINOPHEN
  6. ONDANSETRON [Concomitant]
     Active Substance: ONDANSETRON
     Indication: PROPHYLAXIS
     Dosage: 8MG SEE DOSAGE TEXT
     Route: 048
     Dates: start: 20110921
  7. SOLU-CORTEF [Concomitant]
     Active Substance: HYDROCORTISONE SODIUM SUCCINATE
  8. LIPITOR [Concomitant]
     Active Substance: ATORVASTATIN CALCIUM
     Indication: HYPERCHOLESTEROLAEMIA
     Dosage: 400MG PER DAY
     Route: 048
     Dates: start: 20090420
  9. MIRAPEX [Concomitant]
     Active Substance: PRAMIPEXOLE DIHYDROCHLORIDE
     Indication: PARKINSON^S DISEASE
     Dosage: 1MG THREE TIMES PER DAY
     Route: 048
     Dates: start: 20080101
  10. ZOFRAN [Concomitant]
     Active Substance: ONDANSETRON HYDROCHLORIDE
  11. DIPHENHYDRAMINE [Concomitant]
     Active Substance: DIPHENHYDRAMINE
  12. HYDROCODONE, ACETAMINOPHEN [Concomitant]
     Active Substance: ACETAMINOPHEN\HYDROCODONE BITARTRATE
     Indication: PAIN
     Route: 048
     Dates: start: 20080101
  13. HYDROCODONE [Concomitant]
     Active Substance: HYDROCODONE
  14. ARZERRA [Suspect]
     Active Substance: OFATUMUMAB
     Indication: CHRONIC LYMPHOCYTIC LEUKAEMIA
     Dosage: 300MG WEEKLY
     Route: 042
     Dates: start: 20130910, end: 20131108
  15. SINGULAIR [Concomitant]
     Active Substance: MONTELUKAST SODIUM
  16. ALLOPURINOL. [Concomitant]
     Active Substance: ALLOPURINOL
     Indication: PROPHYLAXIS
     Dosage: 300MG PER DAY
     Route: 048
     Dates: start: 20130906
  17. AZILECT [Concomitant]
     Active Substance: RASAGILINE MESYLATE
     Indication: PARKINSON^S DISEASE
     Dosage: 1MG TWICE PER DAY
     Route: 048
     Dates: start: 20131017
  18. SINEMET [Concomitant]
     Active Substance: CARBIDOPA\LEVODOPA
  19. TESTOSTERONE. [Concomitant]
     Active Substance: TESTOSTERONE
  20. PROCHLORPERAZINE. [Concomitant]
     Active Substance: PROCHLORPERAZINE
  21. NYSTATIN. [Concomitant]
     Active Substance: NYSTATIN

REACTIONS (51)
  - Infusion related reaction [Recovering/Resolving]
  - Pneumonia [Recovering/Resolving]
  - Chronic lymphocytic leukaemia recurrent [Fatal]
  - Tachypnoea [Recovering/Resolving]
  - Leukocytosis [Recovering/Resolving]
  - Chronic lymphocytic leukaemia refractory [Fatal]
  - Fall [Unknown]
  - Immunosuppression [Recovering/Resolving]
  - Anaemia of chronic disease [Recovering/Resolving]
  - Orthostatic hypotension [Recovering/Resolving]
  - Asthenia [Recovering/Resolving]
  - Thrombocytopenia [Recovering/Resolving]
  - Malaise [Recovering/Resolving]
  - Drug ineffective [Unknown]
  - Immunodeficiency [Unknown]
  - Tachycardia [Unknown]
  - Hypogammaglobulinaemia [Unknown]
  - Hospice care [Unknown]
  - Dysphagia [Recovering/Resolving]
  - Pleuritic pain [Unknown]
  - Pyrexia [Unknown]
  - Asthenia [Not Recovered/Not Resolved]
  - Decreased appetite [Unknown]
  - Hypoxia [Unknown]
  - Respiratory failure [Unknown]
  - Dyspnoea [Unknown]
  - Intensive care [Recovered/Resolved]
  - Atrial fibrillation [Unknown]
  - Pneumonia streptococcal [Unknown]
  - Disability [Not Recovered/Not Resolved]
  - Breath sounds abnormal [Unknown]
  - Diarrhoea [Unknown]
  - Febrile neutropenia [Unknown]
  - Respiratory distress [Unknown]
  - Nervousness [Not Recovered/Not Resolved]
  - Transfusion [Unknown]
  - Gastrointestinal haemorrhage [Unknown]
  - Cough [Unknown]
  - Cachexia [Recovering/Resolving]
  - Electrolyte imbalance [Unknown]
  - Sepsis [Unknown]
  - Dizziness [Unknown]
  - Subdural haematoma [Unknown]
  - Pneumonia pneumococcal [Recovered/Resolved]
  - Bacterial sepsis [Recovering/Resolving]
  - Urticaria [Recovering/Resolving]
  - Dyspnoea exertional [Recovering/Resolving]
  - Rehabilitation therapy [Not Recovered/Not Resolved]
  - Hyperglycaemia [Unknown]
  - Confusional state [Unknown]
  - Hypotension [Recovered/Resolved]

NARRATIVE: CASE EVENT DATE: 20130910
